FAERS Safety Report 9789683 (Version 1)
Quarter: 2013Q4

REPORT INFORMATION
  Report Type: Spontaneous
  Country: FR (occurrence: None)
  Receive Date: 20131227
  Receipt Date: 20131227
  Transmission Date: 20140711
  Serious: Yes (Hospitalization)
  Sender: FDA-Public Use
  Company Number: 1933200

PATIENT
  Age: 73 Year
  Sex: 0

DRUGS (7)
  1. CARBOPLATIN [Suspect]
     Indication: PLEURAL MESOTHELIOMA
     Dosage: 500 MG MILLIGRAM(S), 1 CYCLICAL, INTRAVENOUS
     Route: 042
     Dates: start: 20111226, end: 20111226
  2. ALIMTA [Concomitant]
  3. SIMVASTATINE [Concomitant]
  4. EMEND  /01627301/ [Concomitant]
  5. ZOPHREN /00955201/ [Concomitant]
  6. SOLUMEDROL [Concomitant]
  7. ATARAX  /00058401/ [Concomitant]

REACTIONS (9)
  - Hypertension [None]
  - Tachycardia [None]
  - Rash [None]
  - Palatal oedema [None]
  - Abdominal pain upper [None]
  - Vomiting [None]
  - Hypersensitivity [None]
  - Paraesthesia [None]
  - Dyspnoea [None]
